FAERS Safety Report 17134378 (Version 1)
Quarter: 2019Q4

REPORT INFORMATION
  Report Type: Spontaneous
  Country: SE (occurrence: SE)
  Receive Date: 20191210
  Receipt Date: 20191210
  Transmission Date: 20200122
  Serious: Yes (Hospitalization)
  Sender: FDA-Public Use
  Company Number: SE-ASTRAZENECA-2019SF73333

PATIENT
  Age: 15 Year
  Sex: Female

DRUGS (3)
  1. QUETIAPINE. [Suspect]
     Active Substance: QUETIAPINE
     Dosage: 25.0MG UNKNOWN
     Route: 048
     Dates: start: 20181230, end: 20181230
  2. LERGIGAN [PROMETHAZINE HYDROCHLORIDE] [Suspect]
     Active Substance: PROMETHAZINE HYDROCHLORIDE
     Dosage: AMOUNT OF 7
     Route: 048
     Dates: start: 20181230, end: 20181230
  3. PROPAVAN [PROPIOMAZINE MALEATE] [Suspect]
     Active Substance: PROPIOMAZINE MALEATE
     Dosage: AMOUNT OF 12
     Route: 048
     Dates: start: 20181230, end: 20181230

REACTIONS (5)
  - Intentional self-injury [Unknown]
  - Tachycardia [Unknown]
  - Dysarthria [Unknown]
  - Intentional overdose [Unknown]
  - Fatigue [Unknown]

NARRATIVE: CASE EVENT DATE: 20181230
